FAERS Safety Report 19646817 (Version 1)
Quarter: 2021Q3

REPORT INFORMATION
  Report Type: Report from Study
  Country: NL (occurrence: NL)
  Receive Date: 20210802
  Receipt Date: 20210802
  Transmission Date: 20211014
  Serious: Yes (Other)
  Sender: FDA-Public Use
  Company Number: NL-MYLANLABS-2021M1042044

PATIENT
  Age: 42 Year
  Sex: Female
  Weight: 120 kg

DRUGS (12)
  1. GLATIRAMEERACETAAT MYLAN 40 MG/ML [Suspect]
     Active Substance: GLATIRAMER ACETATE
     Indication: MULTIPLE SCLEROSIS
     Dosage: 40 MILLIGRAM, 3XW
     Route: 058
     Dates: start: 20190626
  2. PREGABALINE [Concomitant]
     Active Substance: PREGABALIN
     Dosage: 2 TIMES DAILY 1 CAPSULE
     Route: 048
  3. CLOBETASOL [Concomitant]
     Active Substance: CLOBETASOL
     Dosage: 1 TO 2 TIMES DAILY
  4. KETOCONAZOL [Concomitant]
     Active Substance: KETOCONAZOLE
     Dosage: 2 WEEKS
     Route: 048
  5. TRIAMCINOLONACETONIDE [Concomitant]
     Active Substance: TRIAMCINOLONE ACETONIDE
     Dosage: 2 DAYS
     Route: 065
  6. CLONAZEPAM. [Concomitant]
     Active Substance: CLONAZEPAM
     Dosage: 1 TIME DAILY 1 TABLET
     Route: 048
  7. BACLOFEN. [Concomitant]
     Active Substance: BACLOFEN
     Dosage: 5 TIMES DAILY 1 TABLET
     Route: 048
  8. PANTOPRAZOL                        /01263201/ [Concomitant]
     Active Substance: PANTOPRAZOLE
     Dosage: 1 TIMES DAILY 1 TABLET
     Route: 065
  9. SULCONAZOL [Concomitant]
     Dosage: 2 DAYS
  10. CLOPIDOGREL [Concomitant]
     Active Substance: CLOPIDOGREL BISULFATE
     Dosage: 1 TIME DAILY 1 TABLET
     Route: 048
  11. COLECALCIFEROL [Concomitant]
     Active Substance: CHOLECALCIFEROL
     Dosage: ONCE EVERY 2 WEEKS
  12. SIMVASTATINE [Concomitant]
     Active Substance: SIMVASTATIN
     Dosage: 1 TIMES DAILY 1 TABLET
     Route: 048

REACTIONS (5)
  - Muscle spasms [Not Recovered/Not Resolved]
  - Multiple sclerosis relapse [Not Recovered/Not Resolved]
  - Band sensation [Not Recovered/Not Resolved]
  - Chest discomfort [Not Recovered/Not Resolved]
  - Dyspnoea [Not Recovered/Not Resolved]
